FAERS Safety Report 8223797-1 (Version None)
Quarter: 2012Q1

REPORT INFORMATION
  Report Type: 
  Country: None (occurrence: None)
  Receive Date: 20120321
  Receipt Date: 20120321
  Transmission Date: 20120608
  Serious: Yes (Disabling)
  Sender: FDA-Public Use
  Company Number: None

PATIENT
  Age: 21 Year
  Sex: Male
  Weight: 74.8 kg

DRUGS (2)
  1. DILAUDID [Suspect]
  2. DILAUDID [Suspect]

REACTIONS (2)
  - DEVICE MISUSE [None]
  - SYRINGE ISSUE [None]
